FAERS Safety Report 4446021-4 (Version None)
Quarter: 2004Q3

REPORT INFORMATION
  Report Type: 
  Country: None (occurrence: None)
  Receive Date: 20040910
  Receipt Date: 20040831
  Transmission Date: 20050211
  Serious: Yes (Hospitalization)
  Sender: FDA-Public Use
  Company Number: US-GLAXOSMITHKLINE-A0525038A

PATIENT
  Age: 77 Year
  Sex: Male

DRUGS (8)
  1. PAXIL [Suspect]
     Indication: ANXIETY
     Dosage: 10MG PER DAY
     Route: 048
     Dates: start: 20030723, end: 20030801
  2. PROTONIX [Concomitant]
  3. THEO-DUR [Concomitant]
  4. DIGOXIN [Concomitant]
  5. PREDNISONE [Concomitant]
  6. LORAZEPAM [Concomitant]
  7. ATROVENT [Concomitant]
  8. ALBUTEROL [Concomitant]

REACTIONS (3)
  - MAJOR DEPRESSION [None]
  - SUICIDAL IDEATION [None]
  - SUICIDE ATTEMPT [None]
